FAERS Safety Report 14657733 (Version 1)
Quarter: 2018Q1

REPORT INFORMATION
  Report Type: Report from Study
  Country: US (occurrence: US)
  Receive Date: 20180320
  Receipt Date: 20180320
  Transmission Date: 20180509
  Serious: Yes (Other)
  Sender: FDA-Public Use
  Company Number: US-ROCHE-2090739

PATIENT

DRUGS (6)
  1. HUMULIN INSULIN [Concomitant]
     Active Substance: INSULIN HUMAN
     Dosage: START DATE: 26/AUG?STOP DATE: 27/AUG
     Route: 058
  2. HUMULIN INSULIN [Concomitant]
     Active Substance: INSULIN HUMAN
     Route: 058
     Dates: start: 20150604, end: 20150604
  3. FLUCONAZOLE. [Concomitant]
     Active Substance: FLUCONAZOLE
     Route: 048
     Dates: end: 20150606
  4. METHYLPREDNISOLONE. [Suspect]
     Active Substance: METHYLPREDNISOLONE
     Indication: CHRONIC LYMPHOCYTIC LEUKAEMIA
     Dosage: (1000 MG/M2 FROM DAYS 1-3 IN 28 DAYS CYCLE FOR 1-4 CYCLES: AS PER PROTOCOL)
     Route: 042
  5. MAXZIDE [Concomitant]
     Active Substance: HYDROCHLOROTHIAZIDE\TRIAMTERENE
     Indication: HYPERTENSION
     Route: 048
     Dates: start: 20141021
  6. OBINUTUZUMAB. [Suspect]
     Active Substance: OBINUTUZUMAB
     Indication: CHRONIC LYMPHOCYTIC LEUKAEMIA
     Dosage: (CYCLE 1 DAY 1 (C1D1): 100 MG, C1D2: 900 MG, C1 D8 AND D15 1000 MG FOLLOWED BY 1000 MG ON CYCLES 2-6
     Route: 042

REACTIONS (2)
  - Fatigue [Not Recovered/Not Resolved]
  - Hyperglycaemia [Recovered/Resolved]

NARRATIVE: CASE EVENT DATE: 20150604
